FAERS Safety Report 10005172 (Version 2)
Quarter: 2014Q1

REPORT INFORMATION
  Report Type: Spontaneous
  Country: JP (occurrence: JP)
  Receive Date: 20140312
  Receipt Date: 20140325
  Transmission Date: 20141002
  Serious: Yes (Hospitalization)
  Sender: FDA-Public Use
  Company Number: JP-ABBVIE-14P-087-1211617-00

PATIENT
  Age: 70 Year
  Sex: Female

DRUGS (4)
  1. CLARITH TAB [Suspect]
     Indication: BRONCHITIS
     Route: 048
     Dates: start: 20140220, end: 20140226
  2. SULBACILLIN [Suspect]
     Indication: PNEUMONIA
     Dates: start: 20140220, end: 20140226
  3. AMBROXOL HYDROCHLORIDE [Concomitant]
     Indication: BRONCHITIS
     Dates: start: 20140220, end: 20140227
  4. FLAVERIC [Concomitant]
     Indication: BRONCHITIS
     Dates: start: 20140220, end: 20140227

REACTIONS (1)
  - Pneumonia [Recovered/Resolved]
